FAERS Safety Report 9828261 (Version 1)
Quarter: 2014Q1

REPORT INFORMATION
  Report Type: Spontaneous
  Country: US (occurrence: US)
  Receive Date: 20140117
  Receipt Date: 20140117
  Transmission Date: 20141002
  Serious: No
  Sender: FDA-Public Use
  Company Number: US-PFIZER INC-2014013472

PATIENT
  Age: 51 Year
  Sex: Female
  Weight: 52.15 kg

DRUGS (2)
  1. PREMPRO [Suspect]
     Indication: MENOPAUSAL SYMPTOMS
     Dosage: 0.625 MG OF ESTROGENS CONJUGATED/2.5 MG OF MEDROXYPROGESTERONE ACETATE, 1X/DAY
     Dates: start: 201401
  2. DOXYCYCLINE [Concomitant]
     Indication: ROSACEA
     Dosage: 100 MG, 1X/DAY

REACTIONS (2)
  - Hypersensitivity [Unknown]
  - Eye swelling [Unknown]
